FAERS Safety Report 19069930 (Version 1)
Quarter: 2021Q1

REPORT INFORMATION
  Report Type: Spontaneous
  Country: US (occurrence: US)
  Receive Date: 20210329
  Receipt Date: 20210329
  Transmission Date: 20210420
  Serious: No
  Sender: FDA-Public Use
  Company Number: US-BAUSCH-BL-2021-007323

PATIENT
  Sex: Female

DRUGS (2)
  1. BUPROPION XL [Suspect]
     Active Substance: BUPROPION
     Indication: PRODUCT USED FOR UNKNOWN INDICATION
     Route: 065
  2. WELLBUTRIN XL [Suspect]
     Active Substance: BUPROPION HYDROCHLORIDE
     Indication: PRODUCT USED FOR UNKNOWN INDICATION
     Route: 048

REACTIONS (6)
  - Weight increased [Unknown]
  - Insurance issue [Unknown]
  - Adverse event [Unknown]
  - Inability to afford medication [Unknown]
  - Nightmare [Unknown]
  - Product substitution issue [Unknown]

NARRATIVE: CASE EVENT DATE: 202102
